FAERS Safety Report 11603403 (Version 1)
Quarter: 2015Q4

REPORT INFORMATION
  Report Type: Spontaneous
  Country: US (occurrence: None)
  Receive Date: 20151006
  Receipt Date: 20151006
  Transmission Date: 20160304
  Serious: Yes (Life-Threatening, Hospitalization, Disabling)
  Sender: FDA-Public Use
  Company Number: None

PATIENT
  Age: 56 Year
  Sex: Female
  Weight: 97.52 kg

DRUGS (1)
  1. CIPROFLOXCIN 500MG [Suspect]
     Active Substance: CIPROFLOXACIN
     Indication: BRONCHITIS
     Dosage: 20
     Route: 048
     Dates: start: 20141230

REACTIONS (21)
  - Contusion [None]
  - Choking [None]
  - Sensory disturbance [None]
  - Fatigue [None]
  - Cold sweat [None]
  - Paralysis [None]
  - Vision blurred [None]
  - Paraesthesia [None]
  - Insomnia [None]
  - Urticaria [None]
  - Pain [None]
  - Eating disorder [None]
  - Balance disorder [None]
  - Neuropathy peripheral [None]
  - Memory impairment [None]
  - Gait disturbance [None]
  - Dysphagia [None]
  - Panic attack [None]
  - Asthenia [None]
  - Bladder disorder [None]
  - Tendon rupture [None]
